FAERS Safety Report 7870202-0 (Version None)
Quarter: 2011Q3

REPORT INFORMATION
  Report Type: 
  Country: None (occurrence: None)
  Receive Date: 20110916
  Receipt Date: 20110725
  Transmission Date: 20111222
  Serious: Yes (Hospitalization)
  Sender: FDA-Public Use
  Company Number: 120225

PATIENT
  Age: 27 Year
  Sex: Male

DRUGS (1)
  1. CYTARABINE [Suspect]
     Indication: ACUTE LYMPHOCYTIC LEUKAEMIA
     Dosage: 22632 MG TOTAL/IV
     Route: 042
     Dates: start: 20110513

REACTIONS (1)
  - FEBRILE NEUTROPENIA [None]
